FAERS Safety Report 16062584 (Version 2)
Quarter: 2019Q2

REPORT INFORMATION
  Report Type: Spontaneous
  Country: US (occurrence: US)
  Receive Date: 20190312
  Receipt Date: 20190626
  Transmission Date: 20190711
  Serious: Yes (Hospitalization)
  Sender: FDA-Public Use
  Company Number: US-PFIZER INC-2019100221

PATIENT
  Age: 50 Year
  Sex: Female
  Weight: 94 kg

DRUGS (1)
  1. XELJANZ [Suspect]
     Active Substance: TOFACITINIB CITRATE
     Indication: PSORIATIC ARTHROPATHY
     Dosage: UNK UNK, 1X/DAY
     Route: 048
     Dates: start: 2018, end: 201903

REACTIONS (5)
  - Sunburn [Recovered/Resolved]
  - Rash pruritic [Recovered/Resolved]
  - Product use issue [Unknown]
  - Swelling face [Recovered/Resolved]
  - Urticaria [Recovered/Resolved]

NARRATIVE: CASE EVENT DATE: 20190224
